FAERS Safety Report 26121332 (Version 1)
Quarter: 2025Q4

REPORT INFORMATION
  Report Type: Spontaneous
  Country: US (occurrence: None)
  Receive Date: 20251203
  Receipt Date: 20251203
  Transmission Date: 20260117
  Serious: No
  Sender: FDA-CTU
  Company Number: None

PATIENT

DRUGS (1)
  1. ENBREL [Suspect]
     Active Substance: ETANERCEPT

REACTIONS (8)
  - Back pain [None]
  - Gait disturbance [None]
  - Drug ineffective [None]
  - Product dose omission in error [None]
  - Wrong technique in product usage process [None]
  - Influenza [None]
  - Walking aid user [None]
  - Walking aid user [None]
